FAERS Safety Report 4322752-1 (Version None)
Quarter: 2004Q1

REPORT INFORMATION
  Report Type: 
  Country: None (occurrence: None)
  Receive Date: 20040324
  Receipt Date: 20040311
  Transmission Date: 20041129
  Serious: Yes (Disabling)
  Sender: FDA-Public Use
  Company Number: CH-GLAXOSMITHKLINE-B0326549A

PATIENT
  Sex: Male
  Weight: 3.5 kg

DRUGS (3)
  1. ZOVIRAX [Suspect]
     Dosage: 4G PER DAY
     Dates: start: 20030613, end: 20030620
  2. IBUPROFEN [Suspect]
     Dosage: 1.8G PER DAY
     Dates: start: 20030613, end: 20030620
  3. NO CONCURRENT MEDICATION [Concomitant]

REACTIONS (2)
  - CLEFT PALATE [None]
  - DRUG EXPOSURE DURING PREGNANCY [None]
